FAERS Safety Report 24578615 (Version 3)
Quarter: 2025Q1

REPORT INFORMATION
  Report Type: Spontaneous
  Country: JP (occurrence: JP)
  Receive Date: 20241105
  Receipt Date: 20250327
  Transmission Date: 20250408
  Serious: Yes (Life-Threatening, Hospitalization, Other)
  Sender: AMGEN
  Company Number: JP-KYOWAKIRIN-2024KK024356

PATIENT
  Age: 55 Year
  Sex: Female

DRUGS (6)
  1. PEGFILGRASTIM [Suspect]
     Active Substance: PEGFILGRASTIM
     Indication: Colony stimulating factor therapy
     Route: 058
     Dates: start: 20240714, end: 20241016
  2. DOXORUBICIN HYDROCHLORIDE [Suspect]
     Active Substance: DOXORUBICIN HYDROCHLORIDE
     Indication: Breast cancer
     Route: 042
     Dates: start: 20240713, end: 20241001
  3. CYCLOPHOSPHAMIDE [Suspect]
     Active Substance: CYCLOPHOSPHAMIDE
     Indication: Breast cancer
     Route: 042
     Dates: start: 20240713, end: 20241001
  4. PACLITAXEL [Suspect]
     Active Substance: PACLITAXEL
     Indication: Breast cancer
     Route: 042
     Dates: start: 20241015, end: 20241015
  5. DECADRON [Suspect]
     Active Substance: DEXAMETHASONE
     Indication: Breast cancer
     Route: 048
     Dates: start: 20240713, end: 20241015
  6. OLANZAPINE [Concomitant]
     Active Substance: OLANZAPINE
     Indication: Breast cancer
     Route: 048
     Dates: start: 20240713, end: 20241001

REACTIONS (2)
  - Pneumocystis jirovecii pneumonia [Recovering/Resolving]
  - Immunosuppression [Recovered/Resolved]

NARRATIVE: CASE EVENT DATE: 20241022
